FAERS Safety Report 6182429-7 (Version None)
Quarter: 2009Q2

REPORT INFORMATION
  Report Type: 
  Country: None (occurrence: None)
  Receive Date: 20090507
  Receipt Date: 20090504
  Transmission Date: 20091009
  Serious: Yes (Hospitalization)
  Sender: FDA-Public Use
  Company Number: DE-WYE-G03615709

PATIENT
  Age: 44 Year
  Sex: Male
  Weight: 87.8 kg

DRUGS (12)
  1. RAPAMUNE [Suspect]
     Indication: PROPHYLAXIS AGAINST TRANSPLANT REJECTION
     Route: 048
     Dates: start: 20080601, end: 20081114
  2. FURORESE [Suspect]
     Indication: OEDEMA
     Route: 048
     Dates: end: 20081101
  3. FURORESE [Suspect]
     Route: 048
     Dates: start: 20081101
  4. MYFORTIC [Suspect]
     Indication: PROPHYLAXIS AGAINST TRANSPLANT REJECTION
     Route: 048
     Dates: start: 20080601
  5. PREDNISOLONE [Suspect]
     Indication: PROPHYLAXIS AGAINST TRANSPLANT REJECTION
     Route: 048
     Dates: start: 20080601
  6. RAMIPRIL [Concomitant]
     Indication: RENAL HYPERTENSION
     Route: 048
  7. KEPPRA [Concomitant]
     Indication: PARTIAL SEIZURES
     Route: 048
     Dates: start: 20081113
  8. LOCOL [Concomitant]
     Indication: HYPERCHOLESTEROLAEMIA
     Route: 048
  9. MADOPAR [Concomitant]
     Indication: RESTLESS LEGS SYNDROME
     Dosage: 100 MG LEVODOPA + 25 MG BENSERAZIDE PER DAY
  10. NEBIVOLOL [Concomitant]
     Indication: RENAL HYPERTENSION
     Route: 048
  11. CARBAMAZEPINE [Suspect]
     Indication: PARTIAL SEIZURES
     Route: 048
     Dates: end: 20081130
  12. COTRIM [Concomitant]
     Indication: URINARY TRACT INFECTION
     Route: 048

REACTIONS (2)
  - DIABETES MELLITUS [None]
  - HYPERLIPIDAEMIA [None]
